FAERS Safety Report 7434443-9 (Version None)
Quarter: 2011Q2

REPORT INFORMATION
  Report Type: 
  Country: None (occurrence: None)
  Receive Date: 20110425
  Receipt Date: 20110414
  Transmission Date: 20111010
  Serious: Yes (Life-Threatening, Hospitalization)
  Sender: FDA-Public Use
  Company Number: FR-BRISTOL-MYERS SQUIBB COMPANY-15677040

PATIENT
  Age: 75 Year
  Sex: Male

DRUGS (7)
  1. COAPROVEL TABS 300MG/12.5MG [Suspect]
     Indication: HYPERTENSION
     Dosage: 1 DOSAGE FORM = 1 TABLET
     Route: 048
     Dates: end: 20110307
  2. LEXOMIL [Concomitant]
  3. IMOVANE [Concomitant]
  4. ELISOR [Concomitant]
  5. KARDEGIC [Concomitant]
  6. TENORMIN [Suspect]
     Indication: HYPERTENSION
     Route: 048
     Dates: end: 20110307
  7. STAGID [Concomitant]

REACTIONS (3)
  - CARDIO-RESPIRATORY ARREST [None]
  - FACE INJURY [None]
  - ATRIOVENTRICULAR BLOCK [None]
